FAERS Safety Report 4571130-9 (Version None)
Quarter: 2005Q1

REPORT INFORMATION
  Report Type: 
  Country: None (occurrence: None)
  Receive Date: 20050202
  Receipt Date: 20050126
  Transmission Date: 20050727
  Serious: Yes (Hospitalization)
  Sender: FDA-Public Use
  Company Number: 200510035BYL

PATIENT
  Age: 52 Year
  Sex: Male

DRUGS (3)
  1. ADALAT [Suspect]
     Indication: HYPERTENSION
     Dosage: 2000 MG, ONCE, ORAL
     Route: 048
     Dates: start: 20050124
  2. DOXAZOSIN MESYLATE [Suspect]
     Indication: HYPERTENSION
     Dosage: 50 MG,  ONCE, ORAL
     Route: 048
     Dates: start: 20050124
  3. BLOPRESS [Concomitant]

REACTIONS (6)
  - BLOOD PRESSURE DECREASED [None]
  - DEPRESSED LEVEL OF CONSCIOUSNESS [None]
  - DIZZINESS [None]
  - DYSSTASIA [None]
  - INTENTIONAL MISUSE [None]
  - SUICIDE ATTEMPT [None]
